FAERS Safety Report 18855310 (Version 1)
Quarter: 2021Q1

REPORT INFORMATION
  Report Type: Spontaneous
  Country: JP (occurrence: JP)
  Receive Date: 20210205
  Receipt Date: 20210205
  Transmission Date: 20210420
  Serious: Yes (Hospitalization)
  Sender: FDA-Public Use
  Company Number: JP-GILEAD-2021-0515689

PATIENT
  Age: 6 Decade
  Sex: Male
  Weight: 87 kg

DRUGS (3)
  1. VEKLURY [Suspect]
     Active Substance: REMDESIVIR
     Indication: COVID-19 PNEUMONIA
     Dosage: UNK
     Route: 065
  2. AVIGAN [Concomitant]
     Active Substance: FAVIPIRAVIR
     Indication: COVID-19 PNEUMONIA
  3. TOCILIZUMAB. [Concomitant]
     Active Substance: TOCILIZUMAB
     Indication: COVID-19 PNEUMONIA

REACTIONS (4)
  - Wound [Recovering/Resolving]
  - Fall [Unknown]
  - Humerus fracture [Recovering/Resolving]
  - Restlessness [Unknown]
